FAERS Safety Report 15053714 (Version 1)
Quarter: 2018Q2

REPORT INFORMATION
  Report Type: Report from Study
  Country: US (occurrence: US)
  Receive Date: 20180622
  Receipt Date: 20180622
  Transmission Date: 20180711
  Serious: No
  Sender: FDA-Public Use
  Company Number: US-AMGEN-USASL2016080806

PATIENT
  Age: 51 Year
  Sex: Female
  Weight: 122.9 kg

DRUGS (1)
  1. NPLATE [Suspect]
     Active Substance: ROMIPLOSTIM
     Indication: IMMUNE THROMBOCYTOPENIC PURPURA
     Dosage: 250 UNK, QWK
     Route: 058
     Dates: start: 2011

REACTIONS (3)
  - Arthralgia [Recovered/Resolved]
  - Platelet count decreased [Unknown]
  - Abdominal pain upper [Recovered/Resolved]

NARRATIVE: CASE EVENT DATE: 20160613
